FAERS Safety Report 6669713-5 (Version None)
Quarter: 2010Q2

REPORT INFORMATION
  Report Type: 
  Country: None (occurrence: None)
  Receive Date: 20100402
  Receipt Date: 20100326
  Transmission Date: 20101027
  Serious: Yes (Other)
  Sender: FDA-Public Use
  Company Number: 230198J10BRA

PATIENT
  Sex: Female

DRUGS (3)
  1. REBIF [Suspect]
     Indication: RELAPSING-REMITTING MULTIPLE SCLEROSIS
     Dosage: 44 MCG, 3 IN 1 WEEKS
     Dates: start: 20090727
  2. LOXONIN (LOXOPROFEN) [Concomitant]
  3. TIMOPTOL (TIMOLOL MALATE) [Concomitant]

REACTIONS (4)
  - INTRAOCULAR PRESSURE INCREASED [None]
  - OPTIC NEURITIS [None]
  - VISION BLURRED [None]
  - VITREOUS DETACHMENT [None]
